FAERS Safety Report 10155866 (Version 2)
Quarter: 2014Q2

REPORT INFORMATION
  Report Type: Spontaneous
  Country: SE (occurrence: SE)
  Receive Date: 20140506
  Receipt Date: 20140612
  Transmission Date: 20141212
  Serious: Yes (Other)
  Sender: FDA-Public Use
  Company Number: SE-ACTAVIS-2014-08916

PATIENT
  Sex: Female

DRUGS (1)
  1. SERTRALIN ACTAVIS [Suspect]
     Indication: PRODUCT USED FOR UNKNOWN INDICATION
     Dosage: UNKNOWN
     Route: 065

REACTIONS (6)
  - Depression [Unknown]
  - Eating disorder [Unknown]
  - Weight increased [Unknown]
  - Myalgia [Unknown]
  - Arthralgia [Unknown]
  - Coordination abnormal [Unknown]
